FAERS Safety Report 24194354 (Version 1)
Quarter: 2024Q3

REPORT INFORMATION
  Report Type: Spontaneous
  Country: CN (occurrence: CN)
  Receive Date: 20240809
  Receipt Date: 20240809
  Transmission Date: 20241017
  Serious: Yes (Hospitalization, Other)
  Sender: BAXTER
  Company Number: None

PATIENT
  Age: 52 Year
  Sex: Female
  Weight: 55 kg

DRUGS (12)
  1. CYCLOPHOSPHAMIDE [Suspect]
     Active Substance: CYCLOPHOSPHAMIDE
     Indication: Breast cancer female
     Dosage: 0.65 G, ONE TIME IN ONE DAY, DILUTED WITH 500 ML OF 0.9% SODIUM CHLORIDE, AS A PART OF TEC REGIMEN,
     Route: 041
     Dates: start: 20240720, end: 20240720
  2. CYCLOPHOSPHAMIDE [Suspect]
     Active Substance: CYCLOPHOSPHAMIDE
     Indication: Invasive ductal breast carcinoma
  3. CYCLOPHOSPHAMIDE [Suspect]
     Active Substance: CYCLOPHOSPHAMIDE
     Indication: Chemotherapy
  4. SODIUM CHLORIDE [Suspect]
     Active Substance: SODIUM CHLORIDE
     Indication: Medication dilution
     Dosage: 500 ML, ONE TIME IN ONE DAY, USED TO DILUTE 0.65 G OF CYCLOPHOSPHAMIDE, STRENGH: 0.9%, DOSAGE FORM:
     Route: 041
     Dates: start: 20240720, end: 20240720
  5. SODIUM CHLORIDE [Suspect]
     Active Substance: SODIUM CHLORIDE
     Dosage: 250 ML, ONE TIME IN ONE DAY, USED TO DILUTE 90 MG OF EPIRUBICIN HYDROCHLORIDE, STRENGH: 0.9%, DOSAGE
     Route: 041
     Dates: start: 20240720, end: 20240720
  6. SODIUM CHLORIDE [Suspect]
     Active Substance: SODIUM CHLORIDE
     Dosage: 250 ML, ONE TIME IN ONE DAY, USED TO DILUTE 90 MG OF DOCETAXEL, STRENGH: 0.9%, DOSAGE FORM: INJECTIO
     Route: 041
     Dates: start: 20240721, end: 20240721
  7. EPIRUBICIN HYDROCHLORIDE [Suspect]
     Active Substance: EPIRUBICIN HYDROCHLORIDE
     Indication: Breast cancer female
     Dosage: 90 MG, ONE TIME IN ONE DAY, DILUTED WITH 250 ML OF 0.9% SODIUM CHLORIDE, AS A PART OF TEC REGIMEN, S
     Route: 041
     Dates: start: 20240720, end: 20240720
  8. EPIRUBICIN HYDROCHLORIDE [Suspect]
     Active Substance: EPIRUBICIN HYDROCHLORIDE
     Indication: Invasive ductal breast carcinoma
  9. EPIRUBICIN HYDROCHLORIDE [Suspect]
     Active Substance: EPIRUBICIN HYDROCHLORIDE
     Indication: Chemotherapy
  10. DOCETAXEL [Suspect]
     Active Substance: DOCETAXEL\DOCETAXEL ANHYDROUS
     Indication: Breast cancer female
     Dosage: 90 MG, ONE TIME IN ONE DAY, DILUTED WITH 250 ML OF 0.9% SODIUM CHLORIDE, AS A PART OF TEC REGIMEN, S
     Route: 041
     Dates: start: 20240721, end: 20240721
  11. DOCETAXEL [Suspect]
     Active Substance: DOCETAXEL\DOCETAXEL ANHYDROUS
     Indication: Invasive ductal breast carcinoma
  12. DOCETAXEL [Suspect]
     Active Substance: DOCETAXEL\DOCETAXEL ANHYDROUS
     Indication: Chemotherapy

REACTIONS (5)
  - Myelosuppression [Recovering/Resolving]
  - Asthenia [Unknown]
  - Pyrexia [Unknown]
  - Granulocyte count decreased [Unknown]
  - Decreased appetite [Unknown]

NARRATIVE: CASE EVENT DATE: 20240725
